FAERS Safety Report 8590744-2 (Version None)
Quarter: 2012Q3

REPORT INFORMATION
  Report Type: 
  Country: None (occurrence: None)
  Receive Date: 20120813
  Receipt Date: 20120807
  Transmission Date: 20120928
  Serious: Yes (Other)
  Sender: FDA-Public Use
  Company Number: US-FRI-1000031530

PATIENT
  Sex: Male

DRUGS (10)
  1. DALIRESP [Suspect]
     Indication: CHRONIC OBSTRUCTIVE PULMONARY DISEASE
     Dosage: 500 MCG
     Route: 048
     Dates: start: 20120305, end: 20120606
  2. SYMBICORT [Concomitant]
  3. DALIRESP [Suspect]
     Indication: UPPER RESPIRATORY TRACT INFECTION
  4. SOTALOL HCL [Concomitant]
  5. ATORVASTATIN [Concomitant]
  6. DONEPEZIL HCL [Concomitant]
  7. LASIX [Concomitant]
  8. UROXATRAL [Concomitant]
  9. VENTOLIN [Concomitant]
  10. NEXIUM [Concomitant]

REACTIONS (2)
  - VASCULAR DEMENTIA [None]
  - MANIA [None]
